FAERS Safety Report 10360537 (Version 1)
Quarter: 2014Q3

REPORT INFORMATION
  Report Type: Spontaneous
  Country: US (occurrence: None)
  Receive Date: 20140801
  Receipt Date: 20140801
  Transmission Date: 20150326
  Serious: Yes (Hospitalization)
  Sender: FDA-Public Use
  Company Number: None

PATIENT
  Age: 65 Year
  Sex: Male
  Weight: 97 kg

DRUGS (3)
  1. RISPERIDONE. [Suspect]
     Active Substance: RISPERIDONE
     Indication: DEMENTIA
     Route: 048
     Dates: start: 20131101, end: 20140521
  2. RISPERIDONE. [Suspect]
     Active Substance: RISPERIDONE
     Indication: SEXUALLY INAPPROPRIATE BEHAVIOUR
     Route: 048
     Dates: start: 20131101, end: 20140521
  3. RISPERIDONE. [Suspect]
     Active Substance: RISPERIDONE
     Indication: AGGRESSION
     Route: 048
     Dates: start: 20131101, end: 20140521

REACTIONS (6)
  - Aphasia [None]
  - Lung infiltration [None]
  - Mental status changes [None]
  - Leukocytosis [None]
  - Neuroleptic malignant syndrome [None]
  - Gait disturbance [None]

NARRATIVE: CASE EVENT DATE: 20140521
